FAERS Safety Report 5714838-1 (Version None)
Quarter: 2008Q2

REPORT INFORMATION
  Report Type: 
  Country: None (occurrence: None)
  Receive Date: 20080423
  Receipt Date: 20070726
  Transmission Date: 20081010
  Serious: No
  Sender: FDA-Public Use
  Company Number: US-BAYER-US-2007-024984

PATIENT
  Age: 57 Year
  Sex: Female
  Weight: 83 kg

DRUGS (1)
  1. LEUKINE [Suspect]
     Indication: LEUKOPENIA
     Route: 058
     Dates: start: 20070410, end: 20070702

REACTIONS (1)
  - INJECTION SITE INFLAMMATION [None]
